FAERS Safety Report 23216001 (Version 5)
Quarter: 2024Q1

REPORT INFORMATION
  Report Type: Spontaneous
  Country: JP (occurrence: JP)
  Receive Date: 20231122
  Receipt Date: 20240122
  Transmission Date: 20240410
  Serious: Yes (Hospitalization, Other)
  Sender: FDA-Public Use
  Company Number: JP-ABBVIE-5474571

PATIENT
  Sex: Male
  Weight: 64 kg

DRUGS (2)
  1. RINVOQ [Suspect]
     Active Substance: UPADACITINIB
     Indication: Dermatitis atopic
     Dosage: FORM STRENGTH: 15 MILLIGRAM
     Route: 048
     Dates: start: 20230601, end: 20230922
  2. KEFLEX [Suspect]
     Active Substance: CEPHALEXIN
     Indication: Cellulitis
     Dosage: TIME INTERVAL: 0.33333333 DAYS: 3 TABLET
     Route: 048
     Dates: start: 20230924

REACTIONS (5)
  - Joint abscess [Recovering/Resolving]
  - Cellulitis [Recovered/Resolved]
  - Liver disorder [Unknown]
  - Feeling hot [Recovered/Resolved]
  - Pain in extremity [Recovered/Resolved]

NARRATIVE: CASE EVENT DATE: 20230101
